FAERS Safety Report 9205525 (Version 2)
Quarter: 2013Q2

REPORT INFORMATION
  Report Type: Spontaneous
  Country: US (occurrence: US)
  Receive Date: 20130403
  Receipt Date: 20130430
  Transmission Date: 20140414
  Serious: No
  Sender: FDA-Public Use
  Company Number: US-009507513-1303USA011018

PATIENT
  Age: 59 Year
  Sex: Male
  Weight: 91.61 kg

DRUGS (8)
  1. PEGINTRON [Suspect]
     Dosage: 150 MCG/0.5ML MIX AS DIRECTED, DIAL TO 0.5ML AND INJECT SUBQ WEEKLY AS DIRECTED BY PHYSICIAN
     Route: 058
  2. REBETOL [Suspect]
  3. TELAPREVIR [Suspect]
  4. ZYRTEC [Concomitant]
     Dosage: 10 MG, UNK
  5. ADVIL [Concomitant]
     Dosage: 200 MG, UNK
  6. ADVIL COLD [Concomitant]
  7. VITAMINS (UNSPECIFIED) [Concomitant]
  8. IMODIUM A-D [Concomitant]
     Dosage: 2 MG, UNK

REACTIONS (11)
  - Tongue blistering [Recovered/Resolved]
  - Dysgeusia [Unknown]
  - Fatigue [Unknown]
  - Asthenia [Unknown]
  - Pruritus [Unknown]
  - Rash generalised [Recovered/Resolved]
  - Dry skin [Not Recovered/Not Resolved]
  - Poor quality sleep [Not Recovered/Not Resolved]
  - Headache [Not Recovered/Not Resolved]
  - Irritability [Not Recovered/Not Resolved]
  - Arthropathy [Unknown]
